FAERS Safety Report 4852734-2 (Version None)
Quarter: 2005Q4

REPORT INFORMATION
  Report Type: 
  Country: None (occurrence: None)
  Receive Date: 20051213
  Receipt Date: 20050927
  Transmission Date: 20060501
  Serious: Yes (Other)
  Sender: FDA-Public Use
  Company Number: PHBS2005CA14243

PATIENT
  Age: 74 Year
  Sex: Female

DRUGS (5)
  1. MIACALCIN [Suspect]
     Indication: OSTEOPOROSIS
     Dosage: 200 UI/DAY
     Route: 045
     Dates: start: 20050307
  2. FOSAMAX [Concomitant]
  3. LEVOTHYROXINE SODIUM [Concomitant]
     Dosage: 0.05 MG, UNK
     Dates: start: 20020101
  4. CIPROFLOXACIN [Concomitant]
     Dosage: 500 MG, UNK
     Dates: start: 20050930, end: 20051015
  5. PALAFER [Concomitant]
     Dates: start: 20050901

REACTIONS (3)
  - ALOPECIA [None]
  - DIFFICULTY IN WALKING [None]
  - GAIT DISTURBANCE [None]
